FAERS Safety Report 14992052 (Version 1)
Quarter: 2018Q2

REPORT INFORMATION
  Report Type: Report from Study
  Country: CA (occurrence: CA)
  Receive Date: 20180608
  Receipt Date: 20180608
  Transmission Date: 20180711
  Serious: Yes (Death, Hospitalization)
  Sender: FDA-Public Use
  Company Number: CA-HLSUS-2018-CA-000877

PATIENT
  Age: 52 Year
  Sex: Male
  Weight: 61 kg

DRUGS (1)
  1. CLOZAPINE. [Suspect]
     Active Substance: CLOZAPINE
     Indication: SCHIZOPHRENIA
     Dosage: 300 MG EVERY DAY

REACTIONS (2)
  - Death [Fatal]
  - Empyema [Unknown]
